FAERS Safety Report 15795241 (Version 1)
Quarter: 2019Q1

REPORT INFORMATION
  Report Type: Spontaneous
  Country: US (occurrence: US)
  Receive Date: 20190107
  Receipt Date: 20190107
  Transmission Date: 20190417
  Serious: No
  Sender: FDA-Public Use
  Company Number: None

PATIENT
  Age: 20 Year
  Sex: Female

DRUGS (1)
  1. AIMOVIG [Suspect]
     Active Substance: ERENUMAB-AOOE
     Indication: MIGRAINE
     Dosage: ?          QUANTITY:1 INJECTION(S);?
     Route: 058
     Dates: start: 20181125, end: 20181225

REACTIONS (5)
  - Constipation [None]
  - Nausea [None]
  - Drug ineffective [None]
  - Vomiting [None]
  - Vertigo [None]

NARRATIVE: CASE EVENT DATE: 20181126
